FAERS Safety Report 25229778 (Version 1)
Quarter: 2025Q2

REPORT INFORMATION
  Report Type: Spontaneous
  Country: ES (occurrence: ES)
  Receive Date: 20250423
  Receipt Date: 20250423
  Transmission Date: 20250717
  Serious: Yes (Other)
  Sender: MERZ
  Company Number: None

PATIENT

DRUGS (10)
  1. BOTULINUM TOXIN TYPE A [Suspect]
     Active Substance: BOTULINUM TOXIN TYPE A
     Indication: Migraine
     Dates: start: 20230109, end: 20230109
  2. BOTULINUM TOXIN TYPE A [Suspect]
     Active Substance: BOTULINUM TOXIN TYPE A
     Dates: start: 20211025, end: 20211025
  3. AJOVY [Suspect]
     Active Substance: FREMANEZUMAB-VFRM
     Indication: Migraine
     Dates: start: 20221011, end: 20230109
  4. CANDESARTAN CILEXETIL [Suspect]
     Active Substance: CANDESARTAN CILEXETIL
     Indication: Migraine
     Dosage: 16 MILLIGRAM
     Route: 048
     Dates: start: 20220615, end: 20230109
  5. TRAZODONE HYDROCHLORIDE [Suspect]
     Active Substance: TRAZODONE HYDROCHLORIDE
     Indication: Migraine
     Dosage: 100 MILLIGRAM
     Route: 048
     Dates: start: 20220615, end: 20230313
  6. ALMOTRIPTAN [Suspect]
     Active Substance: ALMOTRIPTAN
     Indication: Migraine
     Route: 048
     Dates: start: 20200315, end: 20230313
  7. PAROXETINE [Suspect]
     Active Substance: PAROXETINE
     Indication: Migraine
     Dosage: 20 MILLIGRAM
     Route: 048
     Dates: start: 20200315, end: 20230313
  8. AMITRIPTYLINE HYDROCHLORIDE [Suspect]
     Active Substance: AMITRIPTYLINE HYDROCHLORIDE
     Indication: Migraine
     Dosage: 10 MILLIGRAM
     Route: 048
     Dates: start: 20200115, end: 20230313
  9. CLOPIDOGREL [Suspect]
     Active Substance: CLOPIDOGREL BISULFATE
     Indication: Antiphospholipid syndrome
     Dosage: 75 MILLIGRAM
     Route: 048
     Dates: start: 20190715, end: 20230310
  10. NIMODIPINE [Suspect]
     Active Substance: NIMODIPINE
     Indication: Headache
     Dosage: 30 MILLIGRAM
     Route: 048
     Dates: start: 20120715, end: 20230310

REACTIONS (3)
  - Abortion missed [Recovered/Resolved]
  - Off label use [Unknown]
  - Maternal exposure during pregnancy [Unknown]

NARRATIVE: CASE EVENT DATE: 20230109
